FAERS Safety Report 10788588 (Version 1)
Quarter: 2015Q1

REPORT INFORMATION
  Report Type: Spontaneous
  Country: US (occurrence: None)
  Receive Date: 20150210
  Receipt Date: 20150210
  Transmission Date: 20150721
  Serious: Yes (Hospitalization, Other)
  Sender: FDA-Public Use
  Company Number: 2013SA048046

PATIENT
  Age: 70 Year
  Sex: Female

DRUGS (4)
  1. COPAXONE [Concomitant]
     Active Substance: GLATIRAMER ACETATE
  2. AUBAGIO [Suspect]
     Active Substance: TERIFLUNOMIDE
     Indication: MULTIPLE SCLEROSIS
     Dates: start: 201212
  3. ROBAXIN [Concomitant]
     Active Substance: METHOCARBAMOL
  4. AVONEX [Concomitant]
     Active Substance: INTERFERON BETA-1A

REACTIONS (18)
  - Memory impairment [None]
  - Malaise [None]
  - Neck pain [None]
  - Headache [None]
  - Thought blocking [None]
  - Alopecia [None]
  - Bradyphrenia [None]
  - Back disorder [None]
  - Depression [None]
  - Decreased appetite [None]
  - Confusional state [None]
  - Spinal pain [None]
  - Myocardial infarction [None]
  - Drug dose omission [None]
  - Pain in extremity [None]
  - Thinking abnormal [None]
  - Weight decreased [None]
  - Nodule [None]

NARRATIVE: CASE EVENT DATE: 201501
